FAERS Safety Report 10188013 (Version 1)
Quarter: 2014Q2

REPORT INFORMATION
  Report Type: Spontaneous
  Country: US (occurrence: US)
  Receive Date: 20140522
  Receipt Date: 20140522
  Transmission Date: 20141212
  Serious: No
  Sender: FDA-Public Use
  Company Number: US-SA-2013SA105543

PATIENT
  Age: 32 Year
  Sex: Female

DRUGS (2)
  1. LANTUS SOLOSTAR [Suspect]
     Indication: TYPE 2 DIABETES MELLITUS
     Dosage: DOSE:80 UNIT(S)
     Route: 058
  2. SOLOSTAR [Concomitant]

REACTIONS (4)
  - Fear [Unknown]
  - Blood glucose increased [Unknown]
  - Drug dose omission [Unknown]
  - Exposure during pregnancy [Unknown]
